FAERS Safety Report 16736359 (Version 1)
Quarter: 2019Q3

REPORT INFORMATION
  Report Type: Spontaneous
  Country: US (occurrence: US)
  Receive Date: 20190823
  Receipt Date: 20190823
  Transmission Date: 20191005
  Serious: No
  Sender: FDA-Public Use
  Company Number: US-SA-2019SA232938

PATIENT
  Age: 51 Year
  Sex: Female

DRUGS (1)
  1. TOUJEO [Suspect]
     Active Substance: INSULIN GLARGINE
     Indication: TYPE 1 DIABETES MELLITUS
     Dosage: 36 U, QD 1 TIME DAILY, AM
     Route: 065

REACTIONS (4)
  - Product storage error [Unknown]
  - Road traffic accident [Unknown]
  - Unevaluable event [Unknown]
  - Product dose omission [Unknown]
